FAERS Safety Report 4931338-7 (Version None)
Quarter: 2006Q1

REPORT INFORMATION
  Report Type: 
  Country: None (occurrence: None)
  Receive Date: 20060228
  Receipt Date: 20060213
  Transmission Date: 20060701
  Serious: Yes (Death, Hospitalization)
  Sender: FDA-Public Use
  Company Number: 222068

PATIENT
  Age: 70 Year
  Sex: Female
  Weight: 101.1 kg

DRUGS (1)
  1. HERCEPTIN [Suspect]
     Indication: BREAST CANCER
     Dosage: 600 MG, Q2W, INTRAVENOUS
     Route: 042
     Dates: start: 20050722

REACTIONS (1)
  - RESPIRATORY ARREST [None]
